APPROVED DRUG PRODUCT: PAXIL
Active Ingredient: PAROXETINE HYDROCHLORIDE
Strength: EQ 10MG BASE/5ML
Dosage Form/Route: SUSPENSION;ORAL
Application: N020710 | Product #001
Applicant: APOTEX INC
Approved: Jun 25, 1997 | RLD: Yes | RS: No | Type: DISCN